FAERS Safety Report 24085311 (Version 3)
Quarter: 2024Q4

REPORT INFORMATION
  Report Type: Spontaneous
  Country: BE (occurrence: BE)
  Receive Date: 20240712
  Receipt Date: 20241010
  Transmission Date: 20250115
  Serious: Yes (Death, Other)
  Sender: GLAXOSMITHKLINE
  Company Number: BE-GLAXOSMITHKLINE-BE2024EME086209

PATIENT

DRUGS (1)
  1. LAMICTAL [Suspect]
     Active Substance: LAMOTRIGINE
     Indication: Product used for unknown indication
     Dosage: UNK

REACTIONS (5)
  - Epilepsy [Fatal]
  - Asphyxia [Fatal]
  - Death [Fatal]
  - Product dose omission issue [Unknown]
  - Product packaging issue [Unknown]
